FAERS Safety Report 9336911 (Version 1)
Quarter: 2013Q2

REPORT INFORMATION
  Report Type: Report from Study
  Country: CA (occurrence: CA)
  Receive Date: 20130607
  Receipt Date: 20130607
  Transmission Date: 20140414
  Serious: Yes (Hospitalization)
  Sender: FDA-Public Use
  Company Number: CA-BAYER-2012-016321

PATIENT
  Age: 57 Year
  Sex: Male
  Weight: 58.4 kg

DRUGS (24)
  1. REGORAFENIB [Suspect]
     Indication: COLON CANCER METASTATIC
     Dosage: 160 MG, QD
     Route: 048
     Dates: start: 20120404, end: 20120423
  2. MIDAZOLAM [Suspect]
     Dosage: 2 MG, ONCE
     Route: 048
     Dates: start: 20120328, end: 20120328
  3. MIDAZOLAM [Suspect]
     Dosage: 2 MG, ONCE
     Route: 048
     Dates: start: 20120418, end: 20120418
  4. VITAMIN K [Suspect]
     Dosage: 10 MG, ONCE
     Route: 048
     Dates: start: 20120328, end: 20120328
  5. VITAMIN K [Suspect]
     Dosage: 10 MG, ONCE
     Route: 048
     Dates: start: 20120418, end: 20120418
  6. WARFARIN [Suspect]
     Dosage: 10 MG, ONCE
     Route: 048
     Dates: start: 20120328, end: 20120328
  7. WARFARIN [Suspect]
     Dosage: 10 MG, ONCE
     Route: 048
     Dates: start: 20120418, end: 20120418
  8. OMEPRAZOLE [Suspect]
     Dosage: 40 MG, ONCE
     Route: 048
     Dates: start: 20120328, end: 20120328
  9. OMEPRAZOLE [Suspect]
     Dosage: 40 MG, ONCE
     Route: 048
     Dates: start: 20120418, end: 20120418
  10. FRAGMIN [Concomitant]
     Indication: DEEP VEIN THROMBOSIS
     Dosage: 18000 U DAILY
     Route: 058
     Dates: start: 200102
  11. FRAGMIN [Concomitant]
     Indication: CEREBROVASCULAR ACCIDENT PROPHYLAXIS
  12. PLAVIX [Concomitant]
     Indication: DEEP VEIN THROMBOSIS
     Dosage: 75 MG DAILY
     Route: 048
     Dates: start: 2001
  13. PLAVIX [Concomitant]
     Indication: CEREBROVASCULAR ACCIDENT PROPHYLAXIS
  14. DILAUDID [Concomitant]
     Dosage: 4 MG AS REQUIRED AND 2 MG FOR BREAKTROUGH
  15. COLACE [Concomitant]
     Dosage: 1- 2 TABS BID PRN
     Route: 048
     Dates: start: 201201
  16. SENOKOT [Concomitant]
     Dosage: 1- 2 TABS BID PRN
     Route: 048
     Dates: start: 201201
  17. LACTULOSE [Concomitant]
     Dosage: UNK UNK, PRN
     Route: 048
     Dates: start: 20120109
  18. COVERSYL [Concomitant]
     Dosage: 5 MG DAILY
     Route: 048
     Dates: end: 20120515
  19. STEMETIL [Concomitant]
  20. FENOFIBRATE [Concomitant]
     Dosage: 160 MG DAILY
     Dates: start: 2001, end: 20120515
  21. HYDROMORPHONE [Concomitant]
     Dosage: 4 MG Q4H PRN
     Route: 048
     Dates: start: 201201
  22. INNOHEP [Concomitant]
     Dosage: 14000 U DAILY
     Route: 058
     Dates: start: 20120207, end: 20120515
  23. NAPROXEN [Concomitant]
     Dosage: 250 MG, BID
     Route: 048
     Dates: start: 201201, end: 20120522
  24. HYDROMORPH CONTIN [Concomitant]
     Dosage: 24 MG, BID
     Route: 048
     Dates: start: 201201

REACTIONS (5)
  - Colon cancer metastatic [Recovered/Resolved]
  - Dehydration [Recovered/Resolved]
  - Lung abscess [Recovered/Resolved]
  - Device occlusion [Recovered/Resolved]
  - Jaundice [Recovered/Resolved]
